FAERS Safety Report 8160466-0 (Version None)
Quarter: 2012Q1

REPORT INFORMATION
  Report Type: 
  Country: None (occurrence: None)
  Receive Date: 20120223
  Receipt Date: 20120221
  Transmission Date: 20120608
  Serious: Yes (Other)
  Sender: FDA-Public Use
  Company Number: CA-PFIZER INC-2012026083

PATIENT
  Age: 35 Year
  Sex: Female
  Weight: 52.15 kg

DRUGS (2)
  1. LYRICA [Suspect]
     Indication: NEURALGIA
     Dosage: 75 UNK, 2X/DAY
     Route: 048
     Dates: start: 20110801, end: 20111001
  2. LYRICA [Suspect]
     Dosage: 150 MG, 2X/DAY
     Route: 048
     Dates: start: 20111001, end: 20111001

REACTIONS (3)
  - COGNITIVE DISORDER [None]
  - DISTURBANCE IN ATTENTION [None]
  - AMNESIA [None]
